FAERS Safety Report 9099914 (Version 1)
Quarter: 2013Q1

REPORT INFORMATION
  Report Type: Spontaneous
  Country: US (occurrence: US)
  Receive Date: 20130214
  Receipt Date: 20130214
  Transmission Date: 20140127
  Serious: No
  Sender: FDA-Public Use
  Company Number: US-TEVA-386061USA

PATIENT
  Age: 18 Year
  Sex: Female
  Weight: 99.43 kg

DRUGS (1)
  1. PROAIR HFA [Suspect]
     Indication: WHEEZING
     Dates: start: 20130210, end: 20130211

REACTIONS (1)
  - Wheezing [Not Recovered/Not Resolved]
